FAERS Safety Report 15840639 (Version 1)
Quarter: 2019Q1

REPORT INFORMATION
  Report Type: Spontaneous
  Country: IT (occurrence: IT)
  Receive Date: 20190118
  Receipt Date: 20190118
  Transmission Date: 20190417
  Serious: Yes (Other)
  Sender: FDA-Public Use
  Company Number: IT-TEVA-2019-IT-999909

PATIENT
  Age: 49 Year
  Sex: Male

DRUGS (1)
  1. MOXIFLOXACIN HYDROCHLORIDE. [Suspect]
     Active Substance: MOXIFLOXACIN HYDROCHLORIDE
     Indication: CULTURE THROAT POSITIVE
     Dosage: 400 MILLIGRAM DAILY;
     Route: 048
     Dates: start: 20170717, end: 20170717

REACTIONS (2)
  - Drug hypersensitivity [Recovered/Resolved]
  - Erythema [Recovered/Resolved]

NARRATIVE: CASE EVENT DATE: 20180629
